FAERS Safety Report 17190142 (Version 1)
Quarter: 2019Q4

REPORT INFORMATION
  Report Type: Spontaneous
  Country: SE (occurrence: SE)
  Receive Date: 20191223
  Receipt Date: 20191223
  Transmission Date: 20200122
  Serious: Yes (Hospitalization)
  Sender: FDA-Public Use
  Company Number: SE-ACCORD-166843

PATIENT
  Sex: Female

DRUGS (2)
  1. QUETIAPINE. [Suspect]
     Active Substance: QUETIAPINE
     Route: 048
     Dates: start: 20190103, end: 20190103
  2. PROPAVAN [Suspect]
     Active Substance: PROPIOMAZINE
     Dosage: 10-15 PIECES PROPAVAN 25 MG
     Route: 048
     Dates: start: 20190103, end: 20190103

REACTIONS (4)
  - Intentional overdose [Unknown]
  - Fatigue [Unknown]
  - Intentional self-injury [Unknown]
  - Lethargy [Unknown]

NARRATIVE: CASE EVENT DATE: 20190103
